FAERS Safety Report 14982381 (Version 1)
Quarter: 2018Q2

REPORT INFORMATION
  Report Type: Spontaneous
  Country: US (occurrence: US)
  Receive Date: 20180607
  Receipt Date: 20180607
  Transmission Date: 20180711
  Serious: No
  Sender: FDA-Public Use
  Company Number: US-JNJFOC-20180512082

PATIENT
  Age: 10 Decade
  Sex: Female
  Weight: 59.42 kg

DRUGS (7)
  1. LABETALOL [Concomitant]
     Active Substance: LABETALOL\LABETALOL HYDROCHLORIDE
     Indication: HYPERTENSION
     Route: 065
  2. TRAMADOL. [Concomitant]
     Active Substance: TRAMADOL
     Indication: PAIN
     Route: 065
  3. AVASTIN [Concomitant]
     Active Substance: BEVACIZUMAB
     Indication: BLOOD CHOLESTEROL INCREASED
     Route: 065
  4. ZYRTEC [Suspect]
     Active Substance: CETIRIZINE HYDROCHLORIDE
     Route: 065
  5. ZYRTEC [Suspect]
     Active Substance: CETIRIZINE HYDROCHLORIDE
     Indication: SEASONAL ALLERGY
     Route: 065
  6. TYLENOL EXTRA STRENGTH [Concomitant]
     Active Substance: ACETAMINOPHEN
     Indication: PAIN
     Route: 065
  7. ALPRENOLOL [Concomitant]
     Indication: GOUT
     Route: 065

REACTIONS (4)
  - Dry mouth [Recovered/Resolved]
  - Dry skin [Recovered/Resolved]
  - Throat tightness [Recovered/Resolved]
  - Dry throat [Recovered/Resolved]
